FAERS Safety Report 5534291-0 (Version None)
Quarter: 2007Q4

REPORT INFORMATION
  Report Type: 
  Country: None (occurrence: None)
  Receive Date: 20071130
  Receipt Date: 20071120
  Transmission Date: 20080405
  Serious: Yes (Other)
  Sender: FDA-Public Use
  Company Number: THQ2007A01102

PATIENT
  Age: 31 Year
  Sex: Female

DRUGS (2)
  1. DARONDA DEPOT INJECTION (LEUPROLIDE ACETATE) (INJECTION) [Suspect]
     Indication: ENDOMETRIOSIS
     Dosage: 3.75 MG (3.75 MG, 1 IN 1 M) INTRAMUSCULAR
     Route: 030
     Dates: start: 20070207, end: 20070207
  2. DROSPIRENONE W/ETHINYLESTRADIOL [Concomitant]

REACTIONS (2)
  - ABORTION INDUCED [None]
  - DRUG EXPOSURE DURING PREGNANCY [None]
